FAERS Safety Report 9126383 (Version 1)
Quarter: 2013Q1

REPORT INFORMATION
  Report Type: Spontaneous
  Country: FR (occurrence: FR)
  Receive Date: 20130117
  Receipt Date: 20130117
  Transmission Date: 20140127
  Serious: Yes (Hospitalization)
  Sender: FDA-Public Use
  Company Number: FR-GLAXOSMITHKLINE-B0856803A

PATIENT
  Age: 50 None
  Sex: Female

DRUGS (6)
  1. ZELITREX [Suspect]
     Indication: PRODUCT USED FOR UNKNOWN INDICATION
     Dosage: 500MG TWICE PER DAY
     Route: 048
     Dates: start: 20111107, end: 20111202
  2. BACTRIM [Suspect]
     Indication: ANTIBIOTIC PROPHYLAXIS
     Route: 048
     Dates: start: 20111107, end: 20111116
  3. ORACILLINE [Suspect]
     Indication: ANTIBIOTIC PROPHYLAXIS
     Route: 048
     Dates: start: 20111107, end: 20111116
  4. GRANOCYTE [Suspect]
     Indication: LEUKAEMIA
     Route: 042
     Dates: start: 20111114, end: 20111126
  5. LEVOTHYROX [Concomitant]
  6. LITAK [Concomitant]

REACTIONS (5)
  - Drug reaction with eosinophilia and systemic symptoms [Recovered/Resolved]
  - Rash maculo-papular [Recovered/Resolved]
  - Pruritus [Recovered/Resolved]
  - Face oedema [Recovered/Resolved]
  - Eosinophilia [Recovered/Resolved]
